FAERS Safety Report 9000115 (Version 1)
Quarter: 2013Q1

REPORT INFORMATION
  Report Type: Spontaneous
  Country: US (occurrence: US)
  Receive Date: 20130102
  Receipt Date: 20130102
  Transmission Date: 20140127
  Serious: Yes (Congenital Anomaly, Other)
  Sender: FDA-Public Use
  Company Number: US-PFIZER INC-2012329642

PATIENT
  Sex: Male

DRUGS (23)
  1. ZOLOFT [Suspect]
     Dosage: UNK
     Route: 064
     Dates: start: 2005, end: 200712
  2. PRENATAL VITAMINS [Concomitant]
     Dosage: UNK
     Route: 064
  3. SEROQUEL [Concomitant]
     Dosage: UNK
     Route: 064
  4. HYDROCODONE/ACETAMINOPHEN [Concomitant]
     Dosage: UNK
     Route: 064
  5. PROZAC [Concomitant]
     Dosage: UNK
     Route: 064
  6. WELLBUTRIN [Concomitant]
     Dosage: UNK
     Route: 064
  7. VALTREX [Concomitant]
     Dosage: UNK
     Route: 064
  8. SULFAMETHOXAZOLE/TRIMETHOPRIM [Concomitant]
     Dosage: UNK
     Route: 064
  9. TRI SPRINTEC [Concomitant]
     Dosage: UNK
     Route: 064
  10. DEPO PROVERA [Concomitant]
     Dosage: UNK
     Route: 064
  11. CRANTEX LA [Concomitant]
     Dosage: UNK
     Route: 064
  12. CARISOPRODOL [Concomitant]
     Dosage: UNK
     Route: 064
  13. ALPRAZOLAM [Concomitant]
     Dosage: UNK
     Route: 064
  14. AZITHROMYCIN [Concomitant]
     Dosage: UNK
     Route: 064
  15. BACLOFEN [Concomitant]
     Dosage: UNK
     Route: 064
  16. TRAMADOL [Concomitant]
     Dosage: UNK
     Route: 064
  17. FLUCONAZOLE [Concomitant]
     Dosage: UNK
     Route: 064
  18. PHENAZOPYRIDINE [Concomitant]
     Dosage: UNK
     Route: 064
  19. IBUPROFEN [Concomitant]
     Dosage: UNK
     Route: 064
  20. NAPROXEN [Concomitant]
     Dosage: UNK
     Route: 064
  21. LORATADINE [Concomitant]
     Dosage: UNK
     Route: 064
  22. RANITIDINE [Concomitant]
     Dosage: UNK
     Route: 064
  23. AMOXICILLIN [Concomitant]
     Dosage: UNK
     Route: 064

REACTIONS (5)
  - Maternal exposure timing unspecified [Unknown]
  - Congenital hydrocephalus [Unknown]
  - Patent ductus arteriosus [Unknown]
  - Atrial septal defect [Unknown]
  - Premature baby [Unknown]
